FAERS Safety Report 23983787 (Version 1)
Quarter: 2024Q2

REPORT INFORMATION
  Report Type: Spontaneous
  Country: IT (occurrence: IT)
  Receive Date: 20240618
  Receipt Date: 20240618
  Transmission Date: 20240715
  Serious: Yes (Other)
  Sender: FDA-Public Use
  Company Number: IT-VALIDUS PHARMACEUTICALS LLC-IT-VDP-2024-019283

PATIENT

DRUGS (10)
  1. LASIX [Suspect]
     Active Substance: FUROSEMIDE
     Indication: Substance abuse
     Dosage: 125 MG, TOTAL
     Route: 048
     Dates: start: 20240304, end: 20240304
  2. QUETIAPINE FUMARATE [Suspect]
     Active Substance: QUETIAPINE FUMARATE
     Indication: Substance abuse
     Dosage: 500 MG, TOTAL
     Route: 048
     Dates: start: 20240304, end: 20240304
  3. VALPROATE SODIUM [Suspect]
     Active Substance: VALPROATE SODIUM
     Indication: Substance abuse
     Dosage: 1500 MG, TOTAL
     Route: 048
     Dates: start: 20240304, end: 20240304
  4. GABAPENTIN [Suspect]
     Active Substance: GABAPENTIN
     Indication: Substance abuse
     Dosage: 4500 MG, TOTAL
     Route: 048
     Dates: start: 20240304, end: 20240304
  5. RAMIPRIL [Suspect]
     Active Substance: RAMIPRIL
     Indication: Substance abuse
     Dosage: 25 MG, TOTAL
     Route: 048
     Dates: start: 20240304, end: 20240304
  6. LEVOTHYROXINE SODIUM [Suspect]
     Active Substance: LEVOTHYROXINE SODIUM
     Indication: Substance abuse
     Dosage: 125 MICROGRAM, TOTAL
     Route: 048
     Dates: start: 20240304, end: 20240304
  7. SITAGLIPTIN PHOSPHATE [Suspect]
     Active Substance: SITAGLIPTIN PHOSPHATE
     Indication: Substance abuse
     Dosage: 500 MG, TOTAL
     Route: 048
     Dates: start: 20240304, end: 20240304
  8. XANAX [Concomitant]
     Active Substance: ALPRAZOLAM
     Indication: Product used for unknown indication
     Dosage: UNK
     Route: 065
  9. BUPRENORPHINE [Concomitant]
     Active Substance: BUPRENORPHINE
     Indication: Product used for unknown indication
     Dosage: UNK
     Route: 065
  10. CITALOPRAM [Concomitant]
     Active Substance: CITALOPRAM\CITALOPRAM HYDROBROMIDE
     Indication: Product used for unknown indication
     Dosage: UNK
     Route: 065

REACTIONS (3)
  - Substance abuse [Recovered/Resolved]
  - Disorientation [Recovering/Resolving]
  - Sopor [Recovered/Resolved]

NARRATIVE: CASE EVENT DATE: 20240304
